FAERS Safety Report 10036120 (Version 1)
Quarter: 2014Q1

REPORT INFORMATION
  Report Type: Report from Study
  Country: US (occurrence: US)
  Receive Date: 20140325
  Receipt Date: 20140325
  Transmission Date: 20141002
  Serious: Yes (Hospitalization)
  Sender: FDA-Public Use
  Company Number: US-ABBVIE-14P-163-1214005-00

PATIENT
  Sex: Female

DRUGS (12)
  1. HUMIRA [Suspect]
     Indication: PSORIASIS
     Dates: start: 2010
  2. GEODON [Concomitant]
     Indication: BIPOLAR I DISORDER
  3. PAXIL [Concomitant]
     Indication: BIPOLAR I DISORDER
  4. METFORMIN [Concomitant]
     Indication: GLUCOSE TOLERANCE IMPAIRED
  5. LISINOPRIL [Concomitant]
     Indication: BLOOD PRESSURE
  6. LEVOTHYROXINE [Concomitant]
     Indication: THYROID DISORDER
  7. TRAZODONE [Concomitant]
     Indication: INSOMNIA
     Dosage: AT BEDTIME
  8. MULTIVITAMIN [Concomitant]
     Indication: PRODUCT USED FOR UNKNOWN INDICATION
     Dosage: DAILY
  9. VITAMIN D [Concomitant]
     Indication: PRODUCT USED FOR UNKNOWN INDICATION
     Dosage: DAILY
  10. METHOTREXATE [Concomitant]
     Indication: PRODUCT USED FOR UNKNOWN INDICATION
     Dosage: 6 PILLS WEEKLY
  11. CLOBETASOL [Concomitant]
     Indication: PSORIASIS
     Route: 061
  12. CLOBETASOL [Concomitant]
     Indication: PSORIASIS

REACTIONS (8)
  - Dysarthria [Recovered/Resolved]
  - Psoriasis [Not Recovered/Not Resolved]
  - Pelvic pain [Not Recovered/Not Resolved]
  - Gait disturbance [Not Recovered/Not Resolved]
  - Psoriatic arthropathy [Not Recovered/Not Resolved]
  - Nerve root compression [Recovering/Resolving]
  - Unevaluable event [Recovered/Resolved]
  - Fear [Recovered/Resolved]
